FAERS Safety Report 17310560 (Version 1)
Quarter: 2020Q1

REPORT INFORMATION
  Report Type: Spontaneous
  Country: US (occurrence: US)
  Receive Date: 20200123
  Receipt Date: 20200123
  Transmission Date: 20200409
  Serious: No
  Sender: FDA-Public Use
  Company Number: US-ROCHE-2437211

PATIENT
  Age: 31 Year
  Sex: Female

DRUGS (4)
  1. GLATIRAMER ACETATE. [Concomitant]
     Active Substance: GLATIRAMER ACETATE
  2. RITUXIMAB. [Suspect]
     Active Substance: RITUXIMAB
     Indication: MULTIPLE SCLEROSIS
     Route: 042
  3. FINGOLIMOD. [Concomitant]
     Active Substance: FINGOLIMOD
     Route: 065
  4. NATALIZUMAB [Concomitant]
     Active Substance: NATALIZUMAB
     Route: 065

REACTIONS (3)
  - Serum sickness [Recovering/Resolving]
  - Off label use [Unknown]
  - Intentional product use issue [Unknown]
